FAERS Safety Report 24740188 (Version 2)
Quarter: 2025Q1

REPORT INFORMATION
  Report Type: Spontaneous
  Country: US (occurrence: US)
  Receive Date: 20241216
  Receipt Date: 20250102
  Transmission Date: 20250408
  Serious: No
  Sender: SANOFI AVENTIS
  Company Number: US-SANOFI-02333736

PATIENT
  Age: 12 Month
  Sex: Male

DRUGS (2)
  1. ALPROLIX [Suspect]
     Active Substance: EFTRENONACOG ALFA
     Indication: Factor IX deficiency
     Route: 065
  2. ALPROLIX [Suspect]
     Active Substance: EFTRENONACOG ALFA
     Indication: Factor IX deficiency
     Route: 065

REACTIONS (1)
  - Circumcision [Unknown]
